FAERS Safety Report 12156524 (Version 1)
Quarter: 2016Q1

REPORT INFORMATION
  Report Type: Spontaneous
  Country: NL (occurrence: NL)
  Receive Date: 20160307
  Receipt Date: 20160307
  Transmission Date: 20160526
  Serious: Yes (Life-Threatening)
  Sender: FDA-Public Use
  Company Number: NL-TEVA-640455ACC

PATIENT
  Age: 52 Year
  Sex: Female

DRUGS (3)
  1. DULOXETINE CAPSULE MSR 30MG [Suspect]
     Active Substance: DULOXETINE
     Indication: DEPRESSION
     Dosage: 60 MILLIGRAM DAILY; 60 MG; ONCE DAILY TWO PIECES
     Route: 048
     Dates: start: 20160131, end: 20160223
  2. QUETIAPINE TABLET FO  25MG [Concomitant]
     Dosage: 50 MILLIGRAM DAILY; 50 MG; ONCE DAILY TWO PIECES
     Route: 048
     Dates: start: 2014
  3. QUETIAPINE TABLET MGA  50MG [Concomitant]
     Dosage: 150 MILLIGRAM DAILY; 150 MG; ONCE DAILY THREE PIECES
     Route: 048
     Dates: start: 2014

REACTIONS (4)
  - Obsessive-compulsive disorder [Recovering/Resolving]
  - Suicidal ideation [Recovering/Resolving]
  - Therapeutic response unexpected [Recovering/Resolving]
  - Fatigue [Recovering/Resolving]

NARRATIVE: CASE EVENT DATE: 201601
